FAERS Safety Report 8314077-4 (Version None)
Quarter: 2012Q2

REPORT INFORMATION
  Report Type: 
  Country: None (occurrence: None)
  Receive Date: 20120426
  Receipt Date: 20120416
  Transmission Date: 20120825
  Serious: Yes (Hospitalization, Other)
  Sender: FDA-Public Use
  Company Number: ES-ELI_LILLY_AND_COMPANY-ES201204006006

PATIENT

DRUGS (2)
  1. GEMCITABINE HYDROCHLORIDE [Suspect]
     Indication: PANCREATIC CARCINOMA NON-RESECTABLE
     Dosage: 300 MG/M2, WEEKLY (1/W)
     Route: 042
  2. SORAFENIB [Concomitant]
     Indication: PANCREATIC CARCINOMA NON-RESECTABLE
     Dosage: UNK, UNKNOWN

REACTIONS (1)
  - POSTERIOR REVERSIBLE ENCEPHALOPATHY SYNDROME [None]
